FAERS Safety Report 7018574-3 (Version None)
Quarter: 2010Q3

REPORT INFORMATION
  Report Type: 
  Country: None (occurrence: None)
  Receive Date: 20100924
  Receipt Date: 20100509
  Transmission Date: 20110219
  Serious: Yes (Life-Threatening)
  Sender: FDA-Public Use
  Company Number: 1000016397

PATIENT

DRUGS (1)
  1. DINOPROSTONE (DINOPROSTONE) (10 MILLIGRAM) [Suspect]
     Dosage: 10 MG (10 MG), TRANSPLACENTAL
     Route: 064
     Dates: start: 20100430, end: 20100430

REACTIONS (2)
  - APGAR SCORE LOW [None]
  - MATERNAL DRUGS AFFECTING FOETUS [None]
